FAERS Safety Report 25472038 (Version 1)
Quarter: 2025Q2

REPORT INFORMATION
  Report Type: Spontaneous
  Country: LT (occurrence: LT)
  Receive Date: 20250624
  Receipt Date: 20250624
  Transmission Date: 20250716
  Serious: Yes (Life-Threatening, Hospitalization, Other)
  Sender: Steriscience PTE
  Company Number: None

PATIENT
  Age: 14 Year
  Sex: Female

DRUGS (4)
  1. GANCICLOVIR SODIUM [Suspect]
     Active Substance: GANCICLOVIR SODIUM
     Indication: Cytomegalovirus viraemia
     Route: 042
  2. GANCICLOVIR SODIUM [Suspect]
     Active Substance: GANCICLOVIR SODIUM
     Indication: BK virus infection
  3. LYMPHOCYTES [Suspect]
     Active Substance: LYMPHOCYTES
     Indication: Cytomegalovirus infection reactivation
     Route: 065
  4. LYMPHOCYTES [Suspect]
     Active Substance: LYMPHOCYTES
     Indication: BK virus infection

REACTIONS (3)
  - Respiratory failure [Unknown]
  - Multiple organ dysfunction syndrome [Unknown]
  - Drug ineffective for unapproved indication [Unknown]
